FAERS Safety Report 7921264-3 (Version None)
Quarter: 2011Q4

REPORT INFORMATION
  Report Type: 
  Country: None (occurrence: None)
  Receive Date: 20111117
  Receipt Date: 20111107
  Transmission Date: 20120403
  Serious: Yes (Hospitalization, Other)
  Sender: FDA-Public Use
  Company Number: US-BAYER-2011-050407

PATIENT
  Sex: Female
  Weight: 70 kg

DRUGS (5)
  1. YASMIN [Suspect]
     Dosage: UNK
     Dates: start: 20060101, end: 20090101
  2. ZANTAC [Concomitant]
  3. DROSPIRENONE AND ETHINYL ESTRADIOL [Suspect]
     Dosage: UNK
     Dates: start: 20060101, end: 20090101
  4. NSAID'S [Concomitant]
  5. PHENTERMINE [Concomitant]
     Indication: WEIGHT DECREASED
     Dosage: UNK
     Dates: start: 20090101, end: 20100101

REACTIONS (3)
  - PAIN [None]
  - CHOLECYSTITIS CHRONIC [None]
  - GALLBLADDER DISORDER [None]
